FAERS Safety Report 8575490-3 (Version None)
Quarter: 2012Q3

REPORT INFORMATION
  Report Type: 
  Country: None (occurrence: None)
  Receive Date: 20120807
  Receipt Date: 20120801
  Transmission Date: 20120928
  Serious: Yes (Hospitalization)
  Sender: FDA-Public Use
  Company Number: CA-ELI_LILLY_AND_COMPANY-CA201208000844

PATIENT
  Age: 80 Year
  Sex: Female

DRUGS (15)
  1. TYLENOL                                 /SCH/ [Concomitant]
  2. NITRO                              /00003201/ [Concomitant]
  3. RASILEZ [Concomitant]
  4. FORTEO [Suspect]
     Indication: OSTEOPOROSIS
     Dosage: 20 UG, QD
     Route: 058
     Dates: start: 20100628, end: 20120522
  5. EXCEDRIN (MIGRAINE) [Concomitant]
  6. DILAUDID [Concomitant]
  7. COZAAR [Concomitant]
  8. FENTANYL [Concomitant]
  9. WARFARIN SODIUM [Concomitant]
  10. AMLODIPINE BESYLATE [Concomitant]
  11. ATENOLOL [Concomitant]
  12. LASIX [Concomitant]
  13. ESCITALOPRAM [Concomitant]
  14. SIMVASTATIN [Concomitant]
  15. SLOW-K [Concomitant]

REACTIONS (2)
  - SPINAL FRACTURE [None]
  - CYSTITIS [None]
